FAERS Safety Report 4311905-4 (Version None)
Quarter: 2004Q1

REPORT INFORMATION
  Report Type: 
  Country: None (occurrence: None)
  Receive Date: 20040305
  Receipt Date: 20040213
  Transmission Date: 20041129
  Serious: Yes (Other)
  Sender: FDA-Public Use
  Company Number: PHNU2004DE00903

PATIENT
  Sex: Female

DRUGS (3)
  1. CIBADREX [Suspect]
     Indication: HYPERTENSION
     Route: 048
     Dates: start: 20030101
  2. EUTHYROX [Concomitant]
  3. GODAMED [Concomitant]

REACTIONS (1)
  - PSORIASIS [None]
